FAERS Safety Report 8541348-9 (Version None)
Quarter: 2012Q3

REPORT INFORMATION
  Report Type: 
  Country: None (occurrence: None)
  Receive Date: 20120716
  Receipt Date: 20120702
  Transmission Date: 20120928
  Serious: Yes (Hospitalization)
  Sender: FDA-Public Use
  Company Number: UTC-020590

PATIENT
  Age: 69 Year
  Sex: Female
  Weight: 70.4 kg

DRUGS (2)
  1. ADCIRCA [Concomitant]
  2. REMODULIN [Suspect]
     Indication: PULMONARY HYPERTENSION
     Dosage: 21.6 UG/KG (0.015 UG/KG, 1 IN 1 MIN), SUBCUTANEOUS
     Route: 058
     Dates: start: 20120503

REACTIONS (2)
  - INJECTION SITE DISCHARGE [None]
  - INFUSION SITE INFECTION [None]
